FAERS Safety Report 5532877-0 (Version None)
Quarter: 2007Q4

REPORT INFORMATION
  Report Type: 
  Country: None (occurrence: None)
  Receive Date: 20071129
  Receipt Date: 20071129
  Transmission Date: 20080405
  Serious: Yes (Other)
  Sender: FDA-Public Use
  Company Number: None

PATIENT
  Sex: Female

DRUGS (13)
  1. REVLIMID [Suspect]
     Indication: MULTIPLE MYELOMA
     Dosage: 15MG DAILY 21D/28D PO
     Route: 048
  2. GLIPIZIDE [Concomitant]
  3. DEXAMETHASONE TAB [Concomitant]
  4. SOTALOL HYDROCHLORIDE [Concomitant]
  5. DIGITEK [Concomitant]
  6. SIMVASTATIN [Concomitant]
  7. KLOR-CON [Concomitant]
  8. OMEPRAZOLE [Concomitant]
  9. WARFARIN SODIUM [Concomitant]
  10. IRON SUPPLEMENT [Concomitant]
  11. FISH OIL [Concomitant]
  12. MULTI-VITAMIN [Concomitant]
  13. VITAMIN B COMPLEX CAP [Concomitant]

REACTIONS (2)
  - FULL BLOOD COUNT DECREASED [None]
  - NEUTROPENIA [None]
